FAERS Safety Report 4609157-0 (Version None)
Quarter: 2005Q1

REPORT INFORMATION
  Report Type: 
  Country: None (occurrence: None)
  Receive Date: 20050314
  Receipt Date: 20050224
  Transmission Date: 20050727
  Serious: Yes (Hospitalization)
  Sender: FDA-Public Use
  Company Number: DSA_25987_2005

PATIENT
  Age: 80 Year
  Sex: Female

DRUGS (6)
  1. TAVOR [Suspect]
     Dosage: 2 MG Q DAY
     Dates: start: 20020101
  2. RISPERDAL [Suspect]
     Dosage: 1.5 MG Q DAY
     Dates: start: 20020101
  3. ZOLOFT [Suspect]
     Dosage: 50 MG Q DAY
     Dates: start: 20020101
  4. DELIX [Concomitant]
  5. XIMOVAN [Concomitant]
  6. ACETAMINOPHEN [Concomitant]

REACTIONS (3)
  - DRUG INTERACTION [None]
  - PULMONARY EMBOLISM [None]
  - THROMBOSIS [None]
